FAERS Safety Report 16980474 (Version 1)
Quarter: 2019Q4

REPORT INFORMATION
  Report Type: Spontaneous
  Country: DE (occurrence: DE)
  Receive Date: 20191031
  Receipt Date: 20191031
  Transmission Date: 20200122
  Serious: Yes (Hospitalization)
  Sender: FDA-Public Use
  Company Number: DE-ASTRAZENECA-2019SF50818

PATIENT
  Sex: Female
  Weight: 79 kg

DRUGS (9)
  1. ASPIRIN. [Concomitant]
     Active Substance: ASPIRIN
     Dosage: DAILY DOSE: 100 MG MILLGRAM(S) EVERY DAYS
     Route: 048
  2. LERCANIDIPIN [Concomitant]
     Active Substance: LERCANIDIPINE
     Dosage: DAILY DOSE: 40 MG MILLGRAM(S) EVERY DAYS 2 SEPARATED DOSES
     Route: 048
  3. RAMILICH [Concomitant]
     Active Substance: RAMIPRIL
     Dosage: DAILY DOSE: 10 MG MILLGRAM(S) EVERY DAYS
     Route: 048
  4. TORASEMID [Concomitant]
     Active Substance: TORSEMIDE
     Dosage: DAILY DOSE: 15 MG MILLGRAM(S) EVERY DAYS
     Route: 048
  5. ATORVASTATIN ACCORD [Suspect]
     Active Substance: ATORVASTATIN
     Dosage: DAILY DOSE: 80 MG MILLGRAM(S) EVERY DAYS
     Route: 048
     Dates: end: 20190525
  6. BISO LICH [Concomitant]
     Active Substance: BISOPROLOL
     Dosage: DAILY DOSE: 5 MG MILLGRAM(S) EVERY DAYS
     Route: 048
  7. UDC 250 [Concomitant]
     Dosage: DAILY DOSE: 3 DF DOSAGE FORM EVERY DAYS
     Route: 048
  8. BRILIQUE [Suspect]
     Active Substance: TICAGRELOR
     Dosage: 120 MG MILLGRAM(S) EVERY DAYS 2 SEPARATED DOSES
     Route: 048
     Dates: end: 20190525
  9. PANTOPRAZOL [Concomitant]
     Active Substance: PANTOPRAZOLE SODIUM
     Dosage: DAILY DOSE: 20 MG MILLGRAM(S) EVERY DAYS
     Route: 048

REACTIONS (2)
  - Pyrexia [Recovered/Resolved]
  - Hepatic enzyme increased [Recovering/Resolving]

NARRATIVE: CASE EVENT DATE: 201909
